FAERS Safety Report 25934021 (Version 2)
Quarter: 2025Q4

REPORT INFORMATION
  Report Type: Spontaneous
  Country: IN (occurrence: IN)
  Receive Date: 20251017
  Receipt Date: 20251126
  Transmission Date: 20260117
  Serious: Yes (Hospitalization)
  Sender: LUPIN
  Company Number: IN-LUPIN LIMITED-2025-09416

PATIENT

DRUGS (1)
  1. ETHAMBUTOL HYDROCHLORIDE [Suspect]
     Active Substance: ETHAMBUTOL HYDROCHLORIDE
     Indication: Tuberculosis
     Dosage: 600 MILLIGRAM, QD
     Route: 065

REACTIONS (1)
  - Dyspnoea [Not Recovered/Not Resolved]
